FAERS Safety Report 7313187-8 (Version None)
Quarter: 2011Q1

REPORT INFORMATION
  Report Type: 
  Country: None (occurrence: None)
  Receive Date: 20110215
  Receipt Date: 20110215
  Transmission Date: 20110831
  Serious: Yes (Other)
  Sender: FDA-Public Use
  Company Number: None

PATIENT
  Sex: Female
  Weight: 90.7194 kg

DRUGS (1)
  1. PROPOXYPHENE HCL AND ACETAMINOPHEN [Suspect]
     Indication: ARTHRITIS
     Dosage: ONE TABLET PO TID PRN PO
     Route: 048

REACTIONS (3)
  - PALPITATIONS [None]
  - PAIN IN EXTREMITY [None]
  - CARDIAC FLUTTER [None]
